FAERS Safety Report 4672373-6 (Version None)
Quarter: 2005Q2

REPORT INFORMATION
  Report Type: 
  Country: None (occurrence: None)
  Receive Date: 20050520
  Receipt Date: 20040927
  Transmission Date: 20051028
  Serious: Yes (Death, Hospitalization)
  Sender: FDA-Public Use
  Company Number: 8960

PATIENT
  Age: 64 Year
  Sex: Male

DRUGS (1)
  1. METHOTREXATE [Suspect]
     Indication: PSORIASIS
     Dosage: 35 MG

REACTIONS (6)
  - BRONCHOPULMONARY ASPERGILLOSIS [None]
  - HAEMOGLOBIN DECREASED [None]
  - MOUTH ULCERATION [None]
  - NEUTROPENIA [None]
  - PHARYNGEAL ULCERATION [None]
  - WHITE BLOOD CELL COUNT DECREASED [None]
